FAERS Safety Report 5511616-3 (Version None)
Quarter: 2007Q4

REPORT INFORMATION
  Report Type: 
  Country: None (occurrence: None)
  Receive Date: 20071109
  Receipt Date: 20071031
  Transmission Date: 20080405
  Serious: Yes (Hospitalization)
  Sender: FDA-Public Use
  Company Number: FR-WYE-H00965207

PATIENT
  Sex: Male

DRUGS (5)
  1. CORDARONE [Suspect]
     Route: 048
     Dates: start: 20060330
  2. LASIX [Suspect]
     Dosage: 1 DF OD
     Route: 048
     Dates: start: 20060404
  3. ELISOR [Suspect]
     Dosage: 1 DF OD
     Route: 048
     Dates: start: 20060401
  4. ASPIRIN [Suspect]
     Dosage: UNKNOWN
     Route: 048
     Dates: start: 20060401
  5. HEPARIN [Suspect]
     Route: 058
     Dates: start: 20060327, end: 20060406

REACTIONS (3)
  - ATRIAL FIBRILLATION [None]
  - CEREBROVASCULAR ACCIDENT [None]
  - THROMBOCYTOPENIA [None]
